FAERS Safety Report 11905776 (Version 1)
Quarter: 2016Q1

REPORT INFORMATION
  Report Type: Spontaneous
  Country: FR (occurrence: FR)
  Receive Date: 20160111
  Receipt Date: 20160111
  Transmission Date: 20160526
  Serious: Yes (Hospitalization)
  Sender: FDA-Public Use
  Company Number: FR-BIOVITRUM-2016FR0005

PATIENT
  Age: 30 Year
  Sex: Female

DRUGS (6)
  1. KINERET [Suspect]
     Active Substance: ANAKINRA
     Indication: STILL^S DISEASE ADULT ONSET
     Route: 058
     Dates: start: 20150924, end: 20151003
  2. TARDYFERON B9 [Concomitant]
     Active Substance: FERROUS SULFATE\FOLIC ACID
     Dosage: 1 TABLET DAILY
     Dates: end: 20151121
  3. KINERET [Suspect]
     Active Substance: ANAKINRA
     Dates: start: 20151007, end: 20151104
  4. TOCILIZUMAB [Suspect]
     Active Substance: TOCILIZUMAB
     Dates: start: 20151109
  5. CORTICOSTEROID [Concomitant]
     Active Substance: CORTICOSTEROID NOS
     Dates: end: 20151117
  6. CIMZIA [Concomitant]
     Active Substance: CERTOLIZUMAB PEGOL
     Dates: start: 20151118

REACTIONS (5)
  - Hypersensitivity [Unknown]
  - Herpes simplex [Unknown]
  - Rash generalised [Unknown]
  - Pyrexia [Unknown]
  - Pruritus [Unknown]

NARRATIVE: CASE EVENT DATE: 20151012
